FAERS Safety Report 10628762 (Version 2)
Quarter: 2014Q4

REPORT INFORMATION
  Report Type: Spontaneous
  Country: US (occurrence: US)
  Receive Date: 20141205
  Receipt Date: 20141205
  Transmission Date: 20150529
  Serious: Yes (Hospitalization)
  Sender: FDA-Public Use
  Company Number: US-BRISTOL-MYERS SQUIBB COMPANY-21280284

PATIENT
  Age: 80 Year
  Sex: Female
  Weight: 63.49 kg

DRUGS (8)
  1. XANAX [Concomitant]
     Active Substance: ALPRAZOLAM
  2. CITALOPRAM [Concomitant]
     Active Substance: CITALOPRAM HYDROBROMIDE
  3. LOSARTAN [Concomitant]
     Active Substance: LOSARTAN
  4. TRAMADOL [Concomitant]
     Active Substance: TRAMADOL
  5. VERAPAMIL [Concomitant]
     Active Substance: VERAPAMIL HYDROCHLORIDE
  6. PANTOPRAZOLE [Concomitant]
     Active Substance: PANTOPRAZOLE SODIUM
  7. COUMADIN [Suspect]
     Active Substance: WARFARIN SODIUM
  8. NITROL [Concomitant]
     Active Substance: NITROGLYCERIN

REACTIONS (2)
  - Drug ineffective [Unknown]
  - Pulmonary thrombosis [Recovered/Resolved]
